FAERS Safety Report 4399975-9 (Version None)
Quarter: 2004Q3

REPORT INFORMATION
  Report Type: 
  Country: None (occurrence: None)
  Receive Date: 20040714
  Receipt Date: 20040705
  Transmission Date: 20050211
  Serious: Yes (Hospitalization)
  Sender: FDA-Public Use
  Company Number: 2004-06-1979

PATIENT
  Age: 68 Year
  Sex: Female

DRUGS (3)
  1. NAQUA [Suspect]
     Indication: HYPERTENSION
     Dosage: 2 MG/DAY ORAL
     Route: 048
     Dates: start: 20030101, end: 20040608
  2. CONIEL (BENIDIPINE HCL) [Concomitant]
  3. BLOPRESS (CANDESARTAN CILEXETIL) [Concomitant]

REACTIONS (1)
  - INTERSTITIAL LUNG DISEASE [None]
